FAERS Safety Report 20822621 (Version 1)
Quarter: 2022Q2

REPORT INFORMATION
  Report Type: Spontaneous
  Country: None (occurrence: CA)
  Receive Date: 20220512
  Receipt Date: 20220512
  Transmission Date: 20220721
  Serious: Yes (Other)
  Sender: FDA-Public Use
  Company Number: CA-B.Braun Medical Inc.-2128738

PATIENT
  Age: 53 Year
  Sex: Female

DRUGS (32)
  1. CEFUROXIME SODIUM [Suspect]
     Active Substance: CEFUROXIME SODIUM
  2. ACETAMINOPHEN AND CODEINE [Suspect]
     Active Substance: ACETAMINOPHEN\CODEINE PHOSPHATE
  3. ALENDRONATE SODIUM\CHOLECALCIFEROL [Suspect]
     Active Substance: ALENDRONATE SODIUM\CHOLECALCIFEROL
  4. AMITRIPTYLINE [Suspect]
     Active Substance: AMITRIPTYLINE
  5. SULFAMETHOXAZOLE\TRIMETHOPRIM [Suspect]
     Active Substance: SULFAMETHOXAZOLE\TRIMETHOPRIM
  6. ATROVENT HFA [Suspect]
     Active Substance: IPRATROPIUM BROMIDE
  7. BREO ELLIPTA [Suspect]
     Active Substance: FLUTICASONE FUROATE\VILANTEROL TRIFENATATE
  8. BUPROPION [Suspect]
     Active Substance: BUPROPION
  9. CELEBREX [Suspect]
     Active Substance: CELECOXIB
  10. CEPHALEXIN [Suspect]
     Active Substance: CEPHALEXIN
  11. CIPROFLOXACIN HYDROCHLORIDE [Suspect]
     Active Substance: CIPROFLOXACIN HYDROCHLORIDE
  12. CLOPIDOGREL [Suspect]
     Active Substance: CLOPIDOGREL BISULFATE
  13. CYMBALTA [Suspect]
     Active Substance: DULOXETINE HYDROCHLORIDE
  14. FERROUS GLUCONATE [Suspect]
     Active Substance: FERROUS GLUCONATE
  15. FLOVENT [Suspect]
     Active Substance: FLUTICASONE PROPIONATE
  16. GABAPENTIN [Suspect]
     Active Substance: GABAPENTIN
  17. GRAVOL [Suspect]
     Active Substance: DIMENHYDRINATE
  18. INDOMETHACIN [Suspect]
     Active Substance: INDOMETHACIN
  19. KETAMINE [Suspect]
     Active Substance: KETAMINE
  20. MOXIFLOXACIN [Suspect]
     Active Substance: MOXIFLOXACIN
  21. NAPROXEN SODIUM [Suspect]
     Active Substance: NAPROXEN SODIUM
  22. NITROGLYCERIN [Suspect]
     Active Substance: NITROGLYCERIN
  23. NOVORAPID [Suspect]
     Active Substance: INSULIN ASPART
  24. PENICILLIN [Suspect]
     Active Substance: PENICILLIN
  25. PERINDOPRIL [Suspect]
     Active Substance: PERINDOPRIL
  26. POTASSIUM [Suspect]
     Active Substance: POTASSIUM
  27. PREDNISONE [Suspect]
     Active Substance: PREDNISONE
  28. ALBUTEROL [Suspect]
     Active Substance: ALBUTEROL
  29. SENOKOT [Suspect]
     Active Substance: SENNOSIDES
  30. NITROFURANTOIN [Suspect]
     Active Substance: NITROFURANTOIN
  31. TIOTROPIUM BROMIDE MONOHYDRATE [Suspect]
     Active Substance: TIOTROPIUM BROMIDE MONOHYDRATE
  32. WELLBUTRIN [Suspect]
     Active Substance: BUPROPION HYDROCHLORIDE

REACTIONS (30)
  - Abdominal pain [Unknown]
  - Abdominal pain upper [Unknown]
  - Agitation [Unknown]
  - Anxiety [Unknown]
  - Bronchitis [Unknown]
  - Cystitis [Unknown]
  - Depression [Unknown]
  - Diarrhoea [Unknown]
  - Dizziness [Unknown]
  - Fatigue [Unknown]
  - Feeling abnormal [Unknown]
  - Fibromyalgia [Unknown]
  - Fluid retention [Unknown]
  - Hallucination [Unknown]
  - Hyperhidrosis [Unknown]
  - Lymphoedema [Unknown]
  - Malaise [Unknown]
  - Migraine [Unknown]
  - Myocardial infarction [Unknown]
  - Oesophageal pain [Unknown]
  - Oesophageal spasm [Unknown]
  - Pneumonia [Unknown]
  - Pruritus [Unknown]
  - Rash [Unknown]
  - Sleep apnoea syndrome [Unknown]
  - Stomatitis [Unknown]
  - Tinnitus [Unknown]
  - Urticaria [Unknown]
  - Vision blurred [Unknown]
  - Vomiting [Unknown]
